FAERS Safety Report 5224736-8 (Version None)
Quarter: 2007Q1

REPORT INFORMATION
  Report Type: 
  Country: None (occurrence: None)
  Receive Date: 20070129
  Receipt Date: 20070129
  Transmission Date: 20070707
  Serious: Yes (Death)
  Sender: FDA-Public Use
  Company Number: None

PATIENT
  Age: 70 Year
  Sex: Male

DRUGS (2)
  1. GADOLINIUM CONTRAST AGENT [Suspect]
     Indication: NUCLEAR MAGNETIC RESONANCE IMAGING
     Dosage: SINGLE DOSE  IV
     Route: 042
     Dates: start: 20020418
  2. GADOLINIUM CONTRAST AGENT [Suspect]
     Indication: NUCLEAR MAGNETIC RESONANCE IMAGING
     Dosage: SINGLE DOSE  IV
     Route: 042
     Dates: start: 20040617

REACTIONS (1)
  - NEPHROGENIC FIBROSING DERMOPATHY [None]
